FAERS Safety Report 5801731-9 (Version None)
Quarter: 2008Q3

REPORT INFORMATION
  Report Type: 
  Country: None (occurrence: None)
  Receive Date: 20080707
  Receipt Date: 20080625
  Transmission Date: 20090109
  Serious: Yes (Hospitalization, Other)
  Sender: FDA-Public Use
  Company Number: B0527821A

PATIENT
  Age: 30 Year
  Sex: Female

DRUGS (4)
  1. LAMIVUDINE [Suspect]
     Indication: HIV INFECTION
     Route: 065
     Dates: start: 20070101
  2. NEVIRAPINE [Suspect]
     Indication: HIV INFECTION
     Route: 065
  3. ZERIT [Suspect]
     Indication: HIV INFECTION
     Route: 065
  4. RIFADIN [Concomitant]
     Indication: TUBERCULOSIS
     Route: 065

REACTIONS (2)
  - IMMUNE RECONSTITUTION SYNDROME [None]
  - KAPOSI'S SARCOMA [None]
